FAERS Safety Report 8116901-7 (Version None)
Quarter: 2012Q1

REPORT INFORMATION
  Report Type: 
  Country: None (occurrence: None)
  Receive Date: 20120206
  Receipt Date: 20120202
  Transmission Date: 20120608
  Serious: Yes (Life-Threatening, Other)
  Sender: FDA-Public Use
  Company Number: PHHY2012JP008796

PATIENT
  Age: 83 Year
  Sex: Male
  Weight: 50 kg

DRUGS (3)
  1. LEVOFLOXACIN [Concomitant]
     Dosage: 500 MG, UNK
     Route: 048
  2. RIFAMPICIN [Suspect]
     Indication: ATYPICAL MYCOBACTERIAL INFECTION
     Dosage: 450 MG, DAILY
     Route: 048
     Dates: start: 20110830, end: 20110830
  3. CLARITHROMYCIN [Concomitant]
     Dosage: 800 MG, UNK
     Route: 048

REACTIONS (5)
  - HAEMORRHAGE SUBCUTANEOUS [None]
  - BLEEDING TIME PROLONGED [None]
  - PYREXIA [None]
  - GINGIVAL BLEEDING [None]
  - THROMBOCYTOPENIA [None]
